FAERS Safety Report 8763396 (Version 1)
Quarter: 2012Q4

REPORT INFORMATION
  Report Type: 
  Country: US (occurrence: US)
  Receive Date: 20120830
  Receipt Date: 20120830
  Transmission Date: 20130627
  Serious: Yes (Hospitalization, Other)
  Sender: FDA-Public Use
  Company Number: US-ELI_LILLY_AND_COMPANY-US201208006925

PATIENT
  Sex: Female

DRUGS (4)
  1. HUMALOG [Suspect]
     Indication: DIABETES MELLITUS
     Dosage: UNK, prn
     Dates: start: 20120523
  2. HUMALOG [Suspect]
     Indication: DIABETES MELLITUS
     Dosage: UNK, prn
  3. LANTUS [Concomitant]
  4. METFORMIN [Concomitant]

REACTIONS (10)
  - Pulmonary embolism [Unknown]
  - Myocardial infarction [Unknown]
  - Loss of consciousness [Unknown]
  - Blood glucose increased [Not Recovered/Not Resolved]
  - Chest pain [Not Recovered/Not Resolved]
  - Malaise [Not Recovered/Not Resolved]
  - Headache [Not Recovered/Not Resolved]
  - Hypoacusis [Not Recovered/Not Resolved]
  - Anxiety [Unknown]
  - Blood cholesterol increased [Not Recovered/Not Resolved]
